FAERS Safety Report 9134420 (Version 1)
Quarter: 2013Q1

REPORT INFORMATION
  Report Type: Spontaneous
  Country: FR (occurrence: FR)
  Receive Date: 20130304
  Receipt Date: 20130304
  Transmission Date: 20140127
  Serious: Yes (Life-Threatening, Other)
  Sender: FDA-Public Use
  Company Number: FR-JNJFOC-20130212507

PATIENT
  Age: 65 None
  Sex: Male

DRUGS (9)
  1. XARELTO [Suspect]
     Indication: KNEE ARTHROPLASTY
     Route: 048
     Dates: end: 20130131
  2. XARELTO [Suspect]
     Indication: THROMBOSIS PROPHYLAXIS
     Route: 048
     Dates: end: 20130131
  3. TENORMINE [Concomitant]
     Route: 065
  4. EXFORGE [Concomitant]
     Dosage: 160MG/10MG
     Route: 065
  5. FLUDEX [Concomitant]
     Route: 065
  6. MEDIATENSYL [Concomitant]
     Route: 065
  7. ZYLORIC [Concomitant]
     Route: 065
  8. SERESTA [Concomitant]
     Route: 065
  9. PARACETAMOL [Concomitant]
     Route: 065

REACTIONS (2)
  - Shock haemorrhagic [Not Recovered/Not Resolved]
  - Gastrointestinal haemorrhage [Not Recovered/Not Resolved]
